FAERS Safety Report 5031885-6 (Version None)
Quarter: 2006Q2

REPORT INFORMATION
  Report Type: 
  Country: None (occurrence: None)
  Receive Date: 20060621
  Receipt Date: 20060616
  Transmission Date: 20061013
  Serious: Yes (Hospitalization)
  Sender: FDA-Public Use
  Company Number: GB-BOEHRINGER INGELHEIM PHARMACEUTICALS, INC.-2006-UK-02869UK

PATIENT
  Sex: Female

DRUGS (1)
  1. PRAMIPEXOLE [Suspect]
     Indication: PARKINSON'S DISEASE
     Dosage: 4.5 MG SALT DAILY (MAX DOSE)
     Route: 048
     Dates: end: 20060613

REACTIONS (3)
  - CHILLS [None]
  - HYPERHIDROSIS [None]
  - PYREXIA [None]
